FAERS Safety Report 20923020 (Version 1)
Quarter: 2022Q2

REPORT INFORMATION
  Report Type: Spontaneous
  Country: ES (occurrence: ES)
  Receive Date: 20220607
  Receipt Date: 20220607
  Transmission Date: 20220721
  Serious: Yes (Disabling, Other)
  Sender: FDA-Public Use
  Company Number: ES-DENTSPLY-2022SCDP000148

PATIENT
  Age: 83 Year
  Sex: Female

DRUGS (3)
  1. MEPIVACAINE [Suspect]
     Active Substance: MEPIVACAINE HYDROCHLORIDE
     Indication: Nerve block
     Dosage: 2 % MEPIVACAINE
     Route: 047
  2. HYALURONIDASE [Suspect]
     Active Substance: HYALURONIDASE
     Indication: Product used for unknown indication
     Dosage: 150 INTERNATIONAL UNIT
     Route: 047
  3. BUPIVACAINE [Suspect]
     Active Substance: BUPIVACAINE
     Indication: Nerve block
     Dosage: 0.75 % BUPIVACAINE
     Route: 047

REACTIONS (1)
  - Acute macular neuroretinopathy [Recovered/Resolved]
